FAERS Safety Report 7527925-2 (Version None)
Quarter: 2011Q2

REPORT INFORMATION
  Report Type: 
  Country: None (occurrence: None)
  Receive Date: 20110607
  Receipt Date: 20030428
  Transmission Date: 20111010
  Serious: Yes (Death, Other)
  Sender: FDA-Public Use
  Company Number: PHEH2003US03472

PATIENT
  Sex: Female

DRUGS (6)
  1. ZOCOR [Concomitant]
  2. TOPROL-XL [Concomitant]
  3. CARBOPLATIN [Concomitant]
  4. TAXOL [Concomitant]
  5. SYNTHROID [Concomitant]
  6. CLOZARIL [Suspect]
     Indication: SCHIZOPHRENIA
     Dosage: 100 MG, BID
     Route: 048
     Dates: start: 19940901, end: 20020327

REACTIONS (3)
  - OVARIAN CANCER METASTATIC [None]
  - GASTROINTESTINAL HAEMORRHAGE [None]
  - WHITE BLOOD CELL COUNT DECREASED [None]
